FAERS Safety Report 7374056-0 (Version None)
Quarter: 2011Q1

REPORT INFORMATION
  Report Type: 
  Country: None (occurrence: None)
  Receive Date: 20110325
  Receipt Date: 20101006
  Transmission Date: 20110831
  Serious: Yes (Hospitalization)
  Sender: FDA-Public Use
  Company Number: US-BAYER-201032108NA

PATIENT
  Sex: Female
  Weight: 54.545 kg

DRUGS (5)
  1. MEDROL [METHYLPREDNISOLONE ACETATE] [Concomitant]
  2. YAZ [Suspect]
     Indication: ACNE
     Route: 048
     Dates: start: 20071001, end: 20100101
  3. IBUPROFEN [Concomitant]
     Dates: start: 20080801
  4. NORCO [Concomitant]
  5. SKELAXIN [Concomitant]

REACTIONS (10)
  - CEREBRAL THROMBOSIS [None]
  - MYOCARDIAL INFARCTION [None]
  - HEPATIC ADENOMA [None]
  - BENIGN HEPATIC NEOPLASM [None]
  - DEEP VEIN THROMBOSIS [None]
  - HYPERTENSION [None]
  - CEREBRAL HAEMORRHAGE [None]
  - THROMBOSIS [None]
  - GALLBLADDER DISORDER [None]
  - THROMBOPHLEBITIS [None]
